FAERS Safety Report 7398887-6 (Version None)
Quarter: 2011Q2

REPORT INFORMATION
  Report Type: 
  Country: None (occurrence: None)
  Receive Date: 20110407
  Receipt Date: 20110330
  Transmission Date: 20111010
  Serious: Yes (Death)
  Sender: FDA-Public Use
  Company Number: FR-TEVA-274573ISR

PATIENT
  Sex: Male

DRUGS (17)
  1. MESNA [Suspect]
     Route: 042
     Dates: start: 20110301, end: 20110304
  2. METOCLOPRAMIDE [Suspect]
     Route: 042
     Dates: start: 20110305, end: 20110306
  3. ESOMEPRAZOLE MAGNESIUM [Concomitant]
  4. AMIFOSTINE [Suspect]
     Route: 042
     Dates: start: 20110301, end: 20110304
  5. LEVETIRACETAM [Concomitant]
  6. CLONAZEPAM [Concomitant]
  7. MORPHINE HYDROCHLORIDE [Suspect]
     Route: 042
     Dates: start: 20110305, end: 20110306
  8. AMIKACIN [Suspect]
     Route: 042
     Dates: start: 20110305, end: 20110306
  9. ETOPOSIDE [Suspect]
     Indication: TRANSPLANT
     Route: 042
     Dates: start: 20110301, end: 20110304
  10. FONDAPARINUX SODIUM [Suspect]
     Route: 058
     Dates: start: 20110228, end: 20110306
  11. GENTAMICIN [Suspect]
     Route: 048
     Dates: start: 20110302, end: 20110306
  12. PREDNISOLONE SODIUM SULFOBENZOATE [Concomitant]
  13. ACYCLOVIR [Suspect]
     Route: 042
     Dates: start: 20110305, end: 20110306
  14. PIPERACILLIN AND TAZOBACTAM [Suspect]
     Dosage: 12G/1500MG
     Route: 042
     Dates: start: 20110304, end: 20110306
  15. CARBOPLATIN [Suspect]
     Indication: TRANSPLANT
     Route: 042
     Dates: start: 20110301, end: 20110304
  16. CYCLOPHOSPHAMIDE [Suspect]
     Indication: TRANSPLANT
     Route: 042
     Dates: start: 20110301, end: 20110304
  17. PREGABALIN [Concomitant]

REACTIONS (4)
  - MYOPERICARDITIS [None]
  - SEPSIS [None]
  - CARDIAC TAMPONADE [None]
  - CARDIAC ARREST [None]
